FAERS Safety Report 4530867-8 (Version None)
Quarter: 2004Q4

REPORT INFORMATION
  Report Type: 
  Country: None (occurrence: None)
  Receive Date: 20041206
  Receipt Date: 20041004
  Transmission Date: 20050328
  Serious: No
  Sender: FDA-Public Use
  Company Number: US_0410106698

PATIENT
  Age: 65 Year

DRUGS (2)
  1. CYMBALTA [Suspect]
  2. CELEXA [Concomitant]

REACTIONS (1)
  - HYPONATRAEMIA [None]
